FAERS Safety Report 15433425 (Version 1)
Quarter: 2018Q3

REPORT INFORMATION
  Report Type: Spontaneous
  Country: US (occurrence: US)
  Receive Date: 20180921
  Receipt Date: 20180921
  Transmission Date: 20181010
  Serious: Yes (Life-Threatening, Hospitalization, Disabling, Other)
  Sender: FDA-Public Use
  Company Number: None

PATIENT
  Age: 49 Year
  Sex: Male
  Weight: 92.25 kg

DRUGS (23)
  1. ONDANSETRON [Concomitant]
     Active Substance: ONDANSETRON
  2. WARFARIN [Concomitant]
     Active Substance: WARFARIN
  3. SOLATOLOL [Concomitant]
  4. VITAMIN C [Concomitant]
     Active Substance: ASCORBIC ACID
  5. ELIQUIS [Suspect]
     Active Substance: APIXABAN
     Indication: CEREBROVASCULAR ACCIDENT PROPHYLAXIS
     Dosage: AT BEDTIME ORAL
     Route: 048
     Dates: start: 20120601, end: 20121001
  6. GABAPENTIN. [Concomitant]
     Active Substance: GABAPENTIN
  7. CRESTOR [Concomitant]
     Active Substance: ROSUVASTATIN CALCIUM
  8. NORCO [Concomitant]
     Active Substance: ACETAMINOPHEN\HYDROCODONE BITARTRATE
  9. VITAMIN B12 [Concomitant]
     Active Substance: CYANOCOBALAMIN
  10. TORSEMIDE. [Concomitant]
     Active Substance: TORSEMIDE
  11. PROTONIX [Concomitant]
     Active Substance: PANTOPRAZOLE SODIUM
  12. MISC VITAMINS [Concomitant]
  13. VITAMIN D [Concomitant]
     Active Substance: CHOLECALCIFEROL
  14. MULTI VITAMIN FOLIC [Concomitant]
  15. MECLI [Concomitant]
  16. MELATONIN [Concomitant]
     Active Substance: MELATONIN
  17. METOPROLOL. [Concomitant]
     Active Substance: METOPROLOL
  18. ASPIRIN. [Concomitant]
     Active Substance: ASPIRIN
  19. ESCITALOPRAM [Concomitant]
     Active Substance: ESCITALOPRAM OXALATE
  20. ELIQUIS [Suspect]
     Active Substance: APIXABAN
     Indication: CARDIOVASCULAR DISORDER
     Dosage: AT BEDTIME ORAL
     Route: 048
     Dates: start: 20120601, end: 20121001
  21. FLUCOTONISE [Concomitant]
  22. DUCOSATE [Concomitant]
  23. FIBER [Concomitant]
     Active Substance: PSYLLIUM HUSK

REACTIONS (2)
  - Cerebrovascular accident [None]
  - Quality of life decreased [None]

NARRATIVE: CASE EVENT DATE: 20121001
